FAERS Safety Report 10349124 (Version 1)
Quarter: 2014Q3

REPORT INFORMATION
  Report Type: Spontaneous
  Country: CH (occurrence: CH)
  Receive Date: 20140730
  Receipt Date: 20140730
  Transmission Date: 20150326
  Serious: Yes (Other)
  Sender: FDA-Public Use
  Company Number: PHHY2014CH092126

PATIENT
  Age: 3 Year
  Sex: Male

DRUGS (2)
  1. ALGIFOR [Concomitant]
     Active Substance: IBUPROFEN
     Indication: OTITIS MEDIA
  2. AMOXICILLIN. [Suspect]
     Active Substance: AMOXICILLIN
     Indication: OTITIS MEDIA
     Dosage: 8 ML, TID
     Dates: start: 20140716, end: 20140720

REACTIONS (5)
  - Malaise [Unknown]
  - Investigation abnormal [Unknown]
  - Decreased appetite [Unknown]
  - Pyrexia [Not Recovered/Not Resolved]
  - Rash erythematous [Recovering/Resolving]

NARRATIVE: CASE EVENT DATE: 20140721
